FAERS Safety Report 4299832-2 (Version None)
Quarter: 2004Q1

REPORT INFORMATION
  Report Type: 
  Country: None (occurrence: None)
  Receive Date: 20040219
  Receipt Date: 20021204
  Transmission Date: 20041129
  Serious: Yes (Death, Hospitalization)
  Sender: FDA-Public Use
  Company Number: WAES 0212GBR00033

PATIENT
  Age: 80 Year
  Sex: Female

DRUGS (7)
  1. DILTIAZEM HYDROCHLORIDE [Concomitant]
     Dates: start: 19990101
  2. TRUSOPT [Suspect]
     Route: 047
     Dates: start: 19990101
  3. COSOPT [Suspect]
     Route: 047
     Dates: start: 20021001, end: 20021101
  4. FUROSEMIDE [Concomitant]
     Dates: start: 19990101
  5. LANSOPRAZOLE [Concomitant]
     Dates: start: 20000601
  6. LEVOTHYROXINE SODIUM [Concomitant]
     Dates: start: 19990101
  7. TIMOPTOL [Concomitant]
     Route: 047
     Dates: start: 20021101

REACTIONS (4)
  - ACCIDENTAL OVERDOSE [None]
  - ADVERSE EVENT [None]
  - DEATH [None]
  - DYSPNOEA [None]
